FAERS Safety Report 5846140-1 (Version None)
Quarter: 2008Q3

REPORT INFORMATION
  Report Type: 
  Country: None (occurrence: None)
  Receive Date: 20080814
  Receipt Date: 20080805
  Transmission Date: 20090109
  Serious: Yes (Other)
  Sender: FDA-Public Use
  Company Number: FR-PFIZER INC-2008066075

PATIENT
  Age: 59 Year
  Sex: Female

DRUGS (3)
  1. TRIFLUCAN [Suspect]
     Route: 048
     Dates: start: 20080804, end: 20080805
  2. ZOPHREN [Concomitant]
  3. EMEND [Concomitant]

REACTIONS (4)
  - FATIGUE [None]
  - FEELING ABNORMAL [None]
  - MEDICATION ERROR [None]
  - NAUSEA [None]
